FAERS Safety Report 5942734-3 (Version None)
Quarter: 2008Q4

REPORT INFORMATION
  Report Type: 
  Country: None (occurrence: None)
  Receive Date: 20081106
  Receipt Date: 20081031
  Transmission Date: 20090506
  Serious: Yes (Other)
  Sender: FDA-Public Use
  Company Number: JP-BAYER-200812659BYL

PATIENT
  Age: 75 Year
  Sex: Male
  Weight: 70 kg

DRUGS (6)
  1. NEXAVAR [Suspect]
     Indication: RENAL CELL CARCINOMA STAGE IV
     Dosage: TOTAL DAILY DOSE: 800 MG  UNIT DOSE: 200 MG
     Route: 048
     Dates: start: 20080813, end: 20080920
  2. NEXAVAR [Suspect]
     Dosage: UNIT DOSE: 200 MG
     Route: 048
     Dates: start: 20080702, end: 20080812
  3. WARFARIN SODIUM [Concomitant]
     Indication: DEEP VEIN THROMBOSIS
     Route: 048
     Dates: start: 20050405
  4. ASPIRIN [Concomitant]
     Indication: DEEP VEIN THROMBOSIS
     Route: 048
     Dates: start: 20050405
  5. ALFAROL [Concomitant]
     Indication: OSTEOPOROSIS
     Dates: start: 20050405
  6. SENNOSIDE [Concomitant]
     Indication: OSTEOPOROSIS
     Route: 048
     Dates: start: 20050405

REACTIONS (3)
  - ALOPECIA [None]
  - GLOSSITIS [None]
  - PNEUMONIA [None]
